FAERS Safety Report 15524069 (Version 1)
Quarter: 2018Q4

REPORT INFORMATION
  Report Type: Spontaneous
  Country: US (occurrence: US)
  Receive Date: 20181018
  Receipt Date: 20181018
  Transmission Date: 20190205
  Serious: No
  Sender: FDA-Public Use
  Company Number: US-JNJFOC-20180933004

PATIENT
  Sex: Female
  Weight: 96.16 kg

DRUGS (3)
  1. TYLENOL EXTRA STRENGTH [Suspect]
     Active Substance: ACETAMINOPHEN
     Indication: SWELLING
     Dosage: EVERY 4-5 HOURS
     Route: 048
     Dates: start: 20180914
  2. NTG HYDRATING MAKEUP REMOVER TOWELETTES USA [Concomitant]
     Indication: REMOVAL OF INERT MATTER FROM SKIN OR SUBCUTANEOUS TISSUE
     Route: 061
     Dates: start: 20180921, end: 20180921
  3. TYLENOL EXTRA STRENGTH [Suspect]
     Active Substance: ACETAMINOPHEN
     Indication: PAIN
     Dosage: EVERY 4-5 HOURS
     Route: 048
     Dates: start: 20180914

REACTIONS (1)
  - Product use in unapproved indication [Unknown]
